FAERS Safety Report 11663470 (Version 1)
Quarter: 2015Q4

REPORT INFORMATION
  Report Type: Spontaneous
  Country: US (occurrence: None)
  Receive Date: 20151026
  Receipt Date: 20151026
  Transmission Date: 20160304
  Serious: No
  Sender: FDA-Public Use
  Company Number: None

PATIENT
  Age: 17 Year
  Sex: Female

DRUGS (1)
  1. VANCOMYCIN 500MG HOSPIRA [Suspect]
     Active Substance: VANCOMYCIN
     Indication: CYSTIC FIBROSIS
     Dosage: 250 MG BID NEB
     Dates: start: 20130618

REACTIONS (3)
  - Pneumonia [None]
  - Sinusitis [None]
  - Gastric disorder [None]

NARRATIVE: CASE EVENT DATE: 20151013
